FAERS Safety Report 18405711 (Version 1)
Quarter: 2020Q4

REPORT INFORMATION
  Report Type: Report from Study
  Country: DE (occurrence: DE)
  Receive Date: 20201020
  Receipt Date: 20201020
  Transmission Date: 20210114
  Serious: Yes (Other)
  Sender: FDA-Public Use
  Company Number: DE-MYLANLABS-2020M1087799

PATIENT
  Sex: Female
  Weight: 74.6 kg

DRUGS (2)
  1. KISQALI [Suspect]
     Active Substance: RIBOCICLIB
     Indication: BREAST CANCER METASTATIC
     Dosage: 600 MILLIGRAM, DAILY DOSE (SCHEM 21 DAYS INTAKE AND 7 DAYS PAUSED)
     Route: 048
     Dates: start: 20190614
  2. FULVESTRANT. [Suspect]
     Active Substance: FULVESTRANT
     Indication: BREAST CANCER METASTATIC
     Dosage: 500 MG (DAILY DOSE), Q4W
     Route: 030
     Dates: start: 20190612

REACTIONS (4)
  - Malignant neoplasm progression [Not Recovered/Not Resolved]
  - Dental caries [Recovered/Resolved]
  - Fatigue [Not Recovered/Not Resolved]
  - Breast cancer [Not Recovered/Not Resolved]

NARRATIVE: CASE EVENT DATE: 20191218
